FAERS Safety Report 13464447 (Version 1)
Quarter: 2017Q2

REPORT INFORMATION
  Report Type: Spontaneous
  Country: US (occurrence: US)
  Receive Date: 20170420
  Receipt Date: 20170420
  Transmission Date: 20170830
  Serious: Yes (Other)
  Sender: FDA-Public Use
  Company Number: US-ROCHE-356232

PATIENT
  Age: 74 Year
  Sex: Male

DRUGS (2)
  1. KYTRIL [Suspect]
     Active Substance: GRANISETRON HYDROCHLORIDE
     Indication: PROPHYLAXIS
     Route: 042
     Dates: start: 20031210, end: 20031210
  2. GEMZAR [Concomitant]
     Active Substance: GEMCITABINE HYDROCHLORIDE
     Indication: PANCREATIC CARCINOMA
     Route: 042

REACTIONS (8)
  - Chills [None]
  - Hypotension [None]
  - Flatulence [None]
  - Urticaria [None]
  - Abdominal pain [None]
  - Cyanosis [None]
  - Hypersensitivity [Recovered/Resolved]
  - Lip swelling [None]

NARRATIVE: CASE EVENT DATE: 20031210
